FAERS Safety Report 4335519-5 (Version None)
Quarter: 2004Q1

REPORT INFORMATION
  Report Type: 
  Country: None (occurrence: None)
  Receive Date: 20040330
  Receipt Date: 20040220
  Transmission Date: 20041129
  Serious: No
  Sender: FDA-Public Use
  Company Number: 27798

PATIENT
  Sex: Female

DRUGS (1)
  1. TRAVATAN [Suspect]
     Dosage: 1 GTT OS HS OPHT
     Route: 047
     Dates: start: 20040110

REACTIONS (1)
  - VISUAL DISTURBANCE [None]
